FAERS Safety Report 16442387 (Version 1)
Quarter: 2019Q2

REPORT INFORMATION
  Report Type: Spontaneous
  Country: AT (occurrence: AT)
  Receive Date: 20190617
  Receipt Date: 20190617
  Transmission Date: 20190711
  Serious: Yes (Other)
  Sender: FDA-Public Use
  Company Number: AT-MYLANLABS-2019M1055594

PATIENT
  Sex: Female
  Weight: 59 kg

DRUGS (1)
  1. LETROZOLE. [Suspect]
     Active Substance: LETROZOLE
     Indication: BREAST CANCER
     Dosage: UNK
     Route: 065
     Dates: start: 20091217, end: 20181031

REACTIONS (9)
  - Metastases to lymph nodes [Unknown]
  - Metastases to bone [Unknown]
  - Oestrogen receptor assay positive [Unknown]
  - Metastases to the mediastinum [Unknown]
  - Thyroid neoplasm [Unknown]
  - Metastases to thyroid [Unknown]
  - Malignant neoplasm progression [Unknown]
  - Breast cancer [Unknown]
  - Metastases to neck [Unknown]

NARRATIVE: CASE EVENT DATE: 20180926
